FAERS Safety Report 18101890 (Version 3)
Quarter: 2020Q4

REPORT INFORMATION
  Report Type: Report from Study
  Country: None (occurrence: DE)
  Receive Date: 20200802
  Receipt Date: 20201029
  Transmission Date: 20210113
  Serious: Yes (Death, Hospitalization)
  Sender: FDA-Public Use
  Company Number: DE-ABBVIE-20K-062-3505954-00

PATIENT
  Age: 69 Year
  Sex: Male

DRUGS (21)
  1. DUODOPA [Suspect]
     Active Substance: CARBIDOPA\LEVODOPA
     Dosage: MD 7.2 ML +3.0ML ; CRD 4.5 ML/ H; ED 2.0 ML
     Route: 050
  2. RAMILICH [Concomitant]
     Active Substance: RAMIPRIL
     Indication: PRODUCT USED FOR UNKNOWN INDICATION
  3. CLOZAPIN [Concomitant]
     Active Substance: CLOZAPINE
  4. OMEPRAZOL [Concomitant]
     Active Substance: OMEPRAZOLE
     Indication: PRODUCT USED FOR UNKNOWN INDICATION
  5. DUODOPA [Suspect]
     Active Substance: CARBIDOPA\LEVODOPA
     Indication: PARKINSON^S DISEASE
     Dosage: MD 7.2 ML; CRD 4.2 ML/ H; ED 1.8 ML FROM 6 A.M. TO 10. P.M.
     Route: 050
     Dates: start: 201308
  6. RESOLOR [Concomitant]
     Active Substance: PRUCALOPRIDE SUCCINATE
     Indication: PRODUCT USED FOR UNKNOWN INDICATION
  7. ROPINIROL [Concomitant]
     Active Substance: ROPINIROLE
     Indication: PRODUCT USED FOR UNKNOWN INDICATION
  8. VESTIL [Concomitant]
     Indication: PRODUCT USED FOR UNKNOWN INDICATION
  9. ISICOM [Concomitant]
     Active Substance: CARBIDOPA\LEVODOPA
     Indication: PRODUCT USED FOR UNKNOWN INDICATION
     Dosage: 100/25 MG
  10. BIFITERAL [Concomitant]
     Active Substance: LACTULOSE
     Indication: PRODUCT USED FOR UNKNOWN INDICATION
     Dates: start: 20180412
  11. LEVOCARB RETARD [Concomitant]
     Indication: PRODUCT USED FOR UNKNOWN INDICATION
  12. CLOZAPIN [Concomitant]
     Active Substance: CLOZAPINE
     Indication: PRODUCT USED FOR UNKNOWN INDICATION
  13. XADAGO [Concomitant]
     Active Substance: SAFINAMIDE MESYLATE
     Indication: ON AND OFF PHENOMENON
  14. MADOPAR LT [Concomitant]
     Active Substance: BENSERAZIDE HYDROCHLORIDE\LEVODOPA
     Indication: PRODUCT USED FOR UNKNOWN INDICATION
     Dosage: AS REQUIRED
  15. REMERGIL [Concomitant]
     Active Substance: MIRTAZAPINE
     Indication: PRODUCT USED FOR UNKNOWN INDICATION
  16. REMERGIL [Concomitant]
     Active Substance: MIRTAZAPINE
  17. VENLAFAXINE [Concomitant]
     Active Substance: VENLAFAXINE HYDROCHLORIDE
     Indication: PRODUCT USED FOR UNKNOWN INDICATION
  18. PRUCALOPRIDA [Concomitant]
     Indication: PRODUCT USED FOR UNKNOWN INDICATION
  19. MACROGOL [Concomitant]
     Active Substance: POLYETHYLENE GLYCOLS
     Indication: PRODUCT USED FOR UNKNOWN INDICATION
     Dosage: SACHET
     Dates: start: 20180412
  20. VITAMIN B12 [Concomitant]
     Active Substance: CYANOCOBALAMIN
     Indication: PRODUCT USED FOR UNKNOWN INDICATION
     Route: 058
     Dates: start: 20180413
  21. NACOM RETARD [Concomitant]
     Active Substance: CARBIDOPA\LEVODOPA
     Indication: PRODUCT USED FOR UNKNOWN INDICATION
     Dosage: 200/50 MG

REACTIONS (56)
  - Hypokinesia [Unknown]
  - Freezing phenomenon [Unknown]
  - On and off phenomenon [Unknown]
  - Haemoglobin decreased [Unknown]
  - Loss of libido [Unknown]
  - Nightmare [Unknown]
  - Therapeutic product effect variable [Unknown]
  - High density lipoprotein decreased [Unknown]
  - Nausea [Unknown]
  - Dysphagia [Unknown]
  - Device dislocation [Unknown]
  - Blood triglycerides increased [Recovered/Resolved]
  - Haematocrit decreased [Unknown]
  - Mood disorder due to a general medical condition [Unknown]
  - Muscle rigidity [Unknown]
  - C-reactive protein increased [Unknown]
  - Dyskinesia [Unknown]
  - Weight abnormal [Unknown]
  - Gastrointestinal motility disorder [Unknown]
  - Oedema [Unknown]
  - Hallucination [Recovered/Resolved]
  - Depression [Unknown]
  - Bradykinesia [Unknown]
  - Constipation [Unknown]
  - Nausea [Unknown]
  - Tremor [Unknown]
  - High density lipoprotein decreased [Recovered/Resolved]
  - Cachexia [Unknown]
  - Nocturia [Unknown]
  - Therapeutic product effect incomplete [Unknown]
  - Tremor [Unknown]
  - Hypokinesia [Unknown]
  - Hyperkinesia [Unknown]
  - Gait inability [Unknown]
  - Dysarthria [Unknown]
  - Erectile dysfunction [Unknown]
  - Weight decreased [Unknown]
  - Memory impairment [Unknown]
  - Sleep disorder [Unknown]
  - On and off phenomenon [Unknown]
  - Abdominal pain [Not Recovered/Not Resolved]
  - Akinesia [Unknown]
  - Therapeutic product effect variable [Unknown]
  - Hyporeflexia [Unknown]
  - Dysmetria [Unknown]
  - Bacterial test positive [Unknown]
  - Hyperhidrosis [Unknown]
  - Dizziness postural [Unknown]
  - Ileus [Fatal]
  - Haematotoxicity [Fatal]
  - Hyperkinesia [Unknown]
  - Reduced facial expression [Unknown]
  - Balance disorder [Unknown]
  - Restlessness [Unknown]
  - Somnolence [Unknown]
  - Stoma site erythema [Unknown]

NARRATIVE: CASE EVENT DATE: 2016
